FAERS Safety Report 16879761 (Version 1)
Quarter: 2019Q4

REPORT INFORMATION
  Report Type: Spontaneous
  Country: US (occurrence: US)
  Receive Date: 20190807
  Receipt Date: 20190807
  Transmission Date: 20200122
  Serious: No
  Sender: FDA-Public Use
  Company Number: None

PATIENT
  Age: 58 Year
  Sex: Female

DRUGS (2)
  1. AUSTEDO [Suspect]
     Active Substance: DEUTETRABENAZINE
     Indication: DYSTONIA
     Route: 048
     Dates: start: 20190713
  2. AUSTEDO [Suspect]
     Active Substance: DEUTETRABENAZINE
     Indication: DYSTONIA
     Route: 048
     Dates: start: 20190713

REACTIONS (5)
  - Epistaxis [None]
  - Hair texture abnormal [None]
  - Nasal inflammation [None]
  - Dry eye [None]
  - Ocular hyperaemia [None]

NARRATIVE: CASE EVENT DATE: 20190720
